FAERS Safety Report 9300522 (Version 2)
Quarter: 2013Q3

REPORT INFORMATION
  Report Type: Report from Study
  Country: DE (occurrence: DE)
  Receive Date: 20130521
  Receipt Date: 20130712
  Transmission Date: 20140515
  Serious: Yes (Other)
  Sender: FDA-Public Use
  Company Number: DE-ROCHE-1224919

PATIENT
  Age: 42 Year
  Sex: Female
  Weight: 62 kg

DRUGS (6)
  1. PERTUZUMAB [Suspect]
     Indication: BREAST CANCER
     Dosage: LAST DOSE PRIOR TO SAE WAS ON 12/FEB/2013.
     Route: 042
     Dates: start: 20130122, end: 20130305
  2. PERTUZUMAB [Suspect]
     Route: 065
     Dates: start: 20130312
  3. TRASTUZUMAB [Suspect]
     Indication: BREAST CANCER
     Dosage: LAST DOSE PRIOR TO SAE WAS ON 12/FEB/2013.
     Route: 042
     Dates: start: 20130122, end: 20130305
  4. TRASTUZUMAB [Suspect]
     Route: 065
     Dates: start: 20130312
  5. PACLITAXEL [Suspect]
     Indication: BREAST CANCER
     Dosage: LAST DOSE PRIOR TO SAE WAS ON 26/FEB/2013.
     Route: 042
     Dates: start: 20130122, end: 20130305
  6. PACLITAXEL [Suspect]
     Route: 065
     Dates: start: 20130312

REACTIONS (1)
  - Hypoaesthesia [Recovered/Resolved]
